FAERS Safety Report 18472979 (Version 4)
Quarter: 2021Q1

REPORT INFORMATION
  Report Type: Spontaneous
  Country: JP (occurrence: JP)
  Receive Date: 20201106
  Receipt Date: 20210329
  Transmission Date: 20210419
  Serious: Yes (Hospitalization, Disabling)
  Sender: FDA-Public Use
  Company Number: NVSJ2020JP011299

PATIENT
  Age: 77 Year
  Sex: Male
  Weight: 62 kg

DRUGS (3)
  1. OLMETEC [Concomitant]
     Active Substance: OLMESARTAN MEDOXOMIL
     Indication: HYPERTENSION
     Dosage: 20 MG
     Route: 048
  2. NIFEDIPINE. [Concomitant]
     Active Substance: NIFEDIPINE
     Indication: HYPERTENSION
     Dosage: 40 MG
     Route: 048
  3. COSENTYX [Suspect]
     Active Substance: SECUKINUMAB
     Indication: PSORIASIS
     Dosage: 300 MG
     Route: 058
     Dates: start: 20170904, end: 20201003

REACTIONS (3)
  - Movement disorder [Unknown]
  - Lacunar infarction [Recovered/Resolved with Sequelae]
  - Paresis [Unknown]

NARRATIVE: CASE EVENT DATE: 20201002
